FAERS Safety Report 7315848-3 (Version None)
Quarter: 2011Q1

REPORT INFORMATION
  Report Type: 
  Country: None (occurrence: None)
  Receive Date: 20110225
  Receipt Date: 20110223
  Transmission Date: 20110831
  Serious: Yes (Hospitalization, Other)
  Sender: FDA-Public Use
  Company Number: US-ASTRAZENECA-2007UW02072

PATIENT
  Age: 27 Year
  Sex: Female
  Weight: 135.2 kg

DRUGS (87)
  1. SEROQUEL [Suspect]
     Route: 048
     Dates: start: 20010901, end: 20060101
  2. ACCUPRIL [Concomitant]
     Dates: start: 20030123
  3. DEPAKOTE [Concomitant]
     Indication: HALLUCINATION, AUDITORY
     Dates: start: 20030123
  4. ALDACTONE [Concomitant]
  5. LANOXIN [Concomitant]
  6. ZITHROMAX [Concomitant]
  7. CLARITIN [Concomitant]
  8. TRETINOIN [Concomitant]
  9. NASONEX [Concomitant]
  10. NEURONTIN [Concomitant]
     Dates: start: 20030123
  11. CELEXA [Concomitant]
     Dates: start: 20021008
  12. SEROQUEL [Suspect]
     Route: 048
     Dates: start: 20010901, end: 20060101
  13. SEROQUEL [Suspect]
     Route: 048
     Dates: start: 20010901, end: 20060101
  14. DEPAKOTE [Concomitant]
     Indication: SLEEP DISORDER
     Dates: start: 20030123
  15. DEPAKOTE [Concomitant]
     Indication: AFFECTIVE DISORDER
     Dates: start: 20030123
  16. WARFARIN SODIUM [Concomitant]
  17. XANAX [Concomitant]
     Indication: SLEEP DISORDER
     Dosage: 1 MG MORNING 2 MG NIGHT
     Dates: start: 20030123
  18. AMPICILLIN [Concomitant]
  19. ZONEGRAN [Concomitant]
  20. NEXIUM [Concomitant]
  21. TESSALON [Concomitant]
  22. SEROQUEL [Suspect]
     Indication: POST-TRAUMATIC STRESS DISORDER
     Dosage: 25 TO 300 MG
     Route: 048
     Dates: start: 20010701
  23. VALPROIC ACID [Concomitant]
     Dates: start: 20021010
  24. AXID [Concomitant]
  25. HUMIBID [Concomitant]
  26. XANAX [Concomitant]
     Indication: ANXIETY
     Dosage: 1 MG MORNING 2 MG NIGHT
     Dates: start: 20030123
  27. KENALOG IN ORABASE [Concomitant]
  28. KEFLEX [Concomitant]
  29. COMPAZINE [Concomitant]
  30. PROCHLORPERAZINE [Concomitant]
  31. TERAZOL 1 [Concomitant]
  32. DIFLUCAN [Concomitant]
  33. ZESTRIL [Concomitant]
  34. LUNESTA [Concomitant]
  35. SEROQUEL [Suspect]
     Indication: INSOMNIA
     Dosage: 25 TO 300 MG
     Route: 048
     Dates: start: 20010701
  36. SEROQUEL [Suspect]
     Route: 048
     Dates: start: 20010901, end: 20060101
  37. TOPROL-XL [Concomitant]
     Dates: start: 20030123
  38. CLEOCIN [Concomitant]
  39. NAPROXEN [Concomitant]
  40. DIGOXIN [Concomitant]
  41. ALBUTEROL [Concomitant]
  42. ZOLOFT [Concomitant]
     Dates: start: 20030123
  43. SEROQUEL [Suspect]
     Indication: AFFECTIVE DISORDER
     Dosage: 25 TO 300 MG
     Route: 048
     Dates: start: 20010701
  44. LASIX [Concomitant]
     Dates: start: 20030123
  45. LORAZEPAM [Concomitant]
     Dosage: 0.5 MG HALF TO ONE TWO TIMES A DAY AS REQUIRED
     Dates: start: 20030814, end: 20031121
  46. AMBIEN [Concomitant]
     Dosage: 10 MG ONE AT NIGHT AS REQUIRED
     Dates: start: 20030123
  47. NITROSTAT [Concomitant]
  48. RONDEC [Concomitant]
  49. METROGEL [Concomitant]
  50. MEDROL [Concomitant]
  51. SYNALAR [Concomitant]
  52. PEPCID [Concomitant]
  53. TEMAZEPAM [Concomitant]
  54. PROSOM [Concomitant]
  55. ELAVIL [Concomitant]
  56. MOBIC [Concomitant]
  57. PAXIL [Concomitant]
     Dates: start: 20030123
  58. TOPAMAX [Concomitant]
     Dosage: 100 MG ONE AT NIGHT
     Dates: start: 20030123
  59. AUGMENTIN '125' [Concomitant]
  60. LORCET-HD [Concomitant]
  61. HYDROCODONE BITARTRATE [Concomitant]
  62. FLAGYL [Concomitant]
  63. NORCO [Concomitant]
  64. FELDENE [Concomitant]
  65. PHENAZOPYRIDINE HCL TAB [Concomitant]
  66. BACLOFEN [Concomitant]
  67. DENAVIR [Concomitant]
     Dosage: 1%
  68. DOXYCYCLINE [Concomitant]
  69. TRICOR [Concomitant]
  70. ZELNORM [Concomitant]
  71. PREDNISONE [Concomitant]
  72. DEMEROL [Concomitant]
     Indication: TOOTHACHE
     Dates: start: 19990101
  73. SINGULAIR [Concomitant]
  74. SONATA [Concomitant]
  75. REDUX [Concomitant]
  76. SEROQUEL [Suspect]
     Indication: NIGHTMARE
     Dosage: 25 TO 300 MG
     Route: 048
     Dates: start: 20010701
  77. COUMADIN [Concomitant]
     Dates: start: 20030123
  78. TYLENOL [Concomitant]
     Indication: TOOTHACHE
     Dates: start: 19990101
  79. VICODIN [Concomitant]
  80. LACTULOSE [Concomitant]
  81. SPIRONOLACTONE [Concomitant]
  82. ALLEGRA [Concomitant]
  83. CIPRO [Concomitant]
  84. TRIAMCINOLONE [Concomitant]
  85. AMOXIL [Concomitant]
  86. MIDRIN [Concomitant]
  87. CODEINE [Concomitant]
     Indication: TOOTHACHE
     Dates: start: 19990101

REACTIONS (9)
  - TYPE 1 DIABETES MELLITUS [None]
  - JOINT INJURY [None]
  - VIRAL CARDIOMYOPATHY [None]
  - MIGRAINE [None]
  - DIABETES MELLITUS [None]
  - HYPOGLYCAEMIA [None]
  - CARDIAC DISORDER [None]
  - THROMBOSIS [None]
  - CARDIAC FAILURE CONGESTIVE [None]
